FAERS Safety Report 21653771 (Version 4)
Quarter: 2023Q1

REPORT INFORMATION
  Report Type: Report from Study
  Country: EG (occurrence: None)
  Receive Date: 20221129
  Receipt Date: 20230104
  Transmission Date: 20230418
  Serious: Yes (Hospitalization, Other)
  Sender: FDA-Public Use
  Company Number: EG-Merck Healthcare KGaA-9367908

PATIENT
  Age: 40 Year
  Sex: Female

DRUGS (1)
  1. REBIF [Suspect]
     Active Substance: INTERFERON BETA-1A
     Indication: Multiple sclerosis
     Route: 058
     Dates: start: 20180901

REACTIONS (6)
  - Medical device implantation [Unknown]
  - Multiple sclerosis relapse [Recovered/Resolved with Sequelae]
  - Nosocomial infection [Recovered/Resolved]
  - Device related infection [Recovered/Resolved]
  - Eye haemorrhage [Recovered/Resolved]
  - Drug ineffective [Unknown]

NARRATIVE: CASE EVENT DATE: 20220501
